FAERS Safety Report 18491506 (Version 2)
Quarter: 2020Q4

REPORT INFORMATION
  Report Type: Spontaneous
  Country: US (occurrence: US)
  Receive Date: 20201111
  Receipt Date: 20201113
  Transmission Date: 20210114
  Serious: No
  Sender: FDA-Public Use
  Company Number: US-TEVA-2020-US-1847757

PATIENT
  Age: 35 Year

DRUGS (1)
  1. BISOPROLOL FUMARATE AND HYDROCHLOROTHIAZIDE [Suspect]
     Active Substance: BISOPROLOL FUMARATE\HYDROCHLOROTHIAZIDE
     Dosage: BISOPROLOL FUMARATE AND HYDROCHLOROTHIAZIDE TABLETS: 10 MG AND 6.25 MG
     Route: 065
     Dates: start: 20141027

REACTIONS (1)
  - Electrocardiogram PR prolongation [Recovered/Resolved]

NARRATIVE: CASE EVENT DATE: 20201103
